FAERS Safety Report 14301498 (Version 1)
Quarter: 2017Q4

REPORT INFORMATION
  Report Type: Spontaneous
  Country: US (occurrence: US)
  Receive Date: 20171219
  Receipt Date: 20171219
  Transmission Date: 20180321
  Serious: Yes (Other)
  Sender: FDA-Public Use
  Company Number: US-ASTRAZENECA-2017SE30985

PATIENT
  Age: 76 Year
  Sex: Female
  Weight: 64.4 kg

DRUGS (18)
  1. IBRANCE [Suspect]
     Active Substance: PALBOCICLIB
     Indication: BONE CANCER
     Dosage: 100.0MG UNKNOWN
     Route: 048
     Dates: start: 2015, end: 20171111
  2. FENTANYL CITRATE. [Concomitant]
     Active Substance: FENTANYL CITRATE
     Dates: start: 20161219, end: 20161224
  3. HYDROCODONE [Concomitant]
     Active Substance: HYDROCODONE
     Indication: PAIN
     Dosage: 10-325, 1 TABLET  4-5 TIMES A DAY
     Route: 048
  4. FASLODEX [Suspect]
     Active Substance: FULVESTRANT
     Route: 030
     Dates: start: 201607
  5. TAMOXIFEN CITRATE. [Suspect]
     Active Substance: TAMOXIFEN CITRATE
     Indication: BREAST CANCER FEMALE
     Route: 048
     Dates: start: 198611
  6. HYDROCODONE [Concomitant]
     Active Substance: HYDROCODONE
     Indication: BACK DISORDER
     Dosage: 10-325, 1 TABLET  4-5 TIMES A DAY
     Route: 048
  7. HYDROCODONE [Concomitant]
     Active Substance: HYDROCODONE
     Indication: PAIN
     Dosage: 10-325 3-4 TABLETS PER DAY
     Route: 048
  8. HYDROCODONE [Concomitant]
     Active Substance: HYDROCODONE
     Indication: BACK DISORDER
     Dosage: 10-325 3-4 TABLETS PER DAY
     Route: 048
  9. HYDROCODONE [Concomitant]
     Active Substance: HYDROCODONE
     Indication: BURNING SENSATION
     Dosage: 10-325 3-4 TABLETS PER DAY
     Route: 048
  10. LETROZOLE. [Concomitant]
     Active Substance: LETROZOLE
     Route: 048
     Dates: end: 20171111
  11. HYDROCODONE, PARACETAMOL [Concomitant]
     Active Substance: ACETAMINOPHEN\HYDROCODONE
  12. LYRICA [Concomitant]
     Active Substance: PREGABALIN
     Dates: start: 20161219, end: 20161224
  13. GABAPENTIN. [Concomitant]
     Active Substance: GABAPENTIN
     Indication: BURNING SENSATION
     Dates: start: 201607
  14. HYDROCODONE [Concomitant]
     Active Substance: HYDROCODONE
     Indication: BURNING SENSATION
     Dosage: 10-325, 1 TABLET  4-5 TIMES A DAY
     Route: 048
  15. PANTOPRAZOLE [Concomitant]
     Active Substance: PANTOPRAZOLE
     Indication: ERUCTATION
     Route: 048
     Dates: start: 20171112, end: 20171113
  16. IBRANCE [Suspect]
     Active Substance: PALBOCICLIB
     Indication: BREAST CANCER FEMALE
     Dosage: 100.0MG UNKNOWN
     Route: 048
     Dates: start: 2015, end: 20171111
  17. GABAPENTIN. [Concomitant]
     Active Substance: GABAPENTIN
     Indication: BURNING SENSATION
     Route: 048
  18. PANTOPRAZOLE [Concomitant]
     Active Substance: PANTOPRAZOLE
     Indication: ABDOMINAL DISCOMFORT
     Route: 048
     Dates: start: 20171112, end: 20171113

REACTIONS (21)
  - Dizziness [Unknown]
  - Body height decreased [Unknown]
  - Fall [Unknown]
  - Back pain [Unknown]
  - Arthritis [Unknown]
  - Metastases to bone [Unknown]
  - Headache [Unknown]
  - Insomnia [Unknown]
  - Gait disturbance [Unknown]
  - Abdominal distension [Unknown]
  - Malignant neoplasm progression [Not Recovered/Not Resolved]
  - Pleural effusion [Recovered/Resolved]
  - Eructation [Unknown]
  - Pain [Unknown]
  - Alopecia [Recovering/Resolving]
  - Oedema [Recovered/Resolved]
  - Breast cancer recurrent [Unknown]
  - Burning sensation [Unknown]
  - Dysstasia [Unknown]
  - Rib fracture [Unknown]
  - Drug ineffective [Unknown]

NARRATIVE: CASE EVENT DATE: 2014
